FAERS Safety Report 12183399 (Version 2)
Quarter: 2016Q1

REPORT INFORMATION
  Report Type: Spontaneous
  Country: US (occurrence: US)
  Receive Date: 20160316
  Receipt Date: 20160318
  Transmission Date: 20160526
  Serious: Yes (Other)
  Sender: FDA-Public Use
  Company Number: US-ACTAVIS-2016-05628

PATIENT
  Age: 32 Year
  Sex: Male

DRUGS (2)
  1. CISPLATIN (UNKNOWN) [Suspect]
     Active Substance: CISPLATIN
     Indication: NON-SMALL CELL LUNG CANCER
     Dosage: 50 MG/M2 (130 MG) ON DAY 1, 8, 26 AND 36
     Route: 065
  2. ETOPOSIDE (WATSON LABORATORIES) [Suspect]
     Active Substance: ETOPOSIDE
     Indication: NON-SMALL CELL LUNG CANCER
     Dosage: 50 MG/M2 (130 MG) ON DAYS 1-5 AND DAYS 26-33
     Route: 065

REACTIONS (1)
  - Platelet count decreased [Recovered/Resolved]

NARRATIVE: CASE EVENT DATE: 20140829
